FAERS Safety Report 24461479 (Version 1)
Quarter: 2024Q4

REPORT INFORMATION
  Report Type: Report from Study
  Country: US (occurrence: US)
  Receive Date: 20241018
  Receipt Date: 20241018
  Transmission Date: 20250114
  Serious: No
  Sender: ROCHE
  Company Number: US-ROCHE-3554105

PATIENT
  Age: 59 Year
  Sex: Female

DRUGS (2)
  1. RITUXAN [Suspect]
     Active Substance: RITUXIMAB
     Indication: Dermatomyositis
     Dosage: ONGOING: YES, INFUSE 1000 MG ON DAY 1 AND DAY 15 Q 6 MONTHS? FREQUENCY TEXT:DAY 1, 15 THEN ONCE IN 6
     Route: 042
     Dates: start: 20240421
  2. RITUXAN [Suspect]
     Active Substance: RITUXIMAB
     Indication: Myopathy

REACTIONS (2)
  - Off label use [Unknown]
  - No adverse event [Unknown]
